FAERS Safety Report 8993465 (Version 3)
Quarter: 2013Q1

REPORT INFORMATION
  Report Type: Spontaneous
  Country: US (occurrence: US)
  Receive Date: 20130102
  Receipt Date: 20130208
  Transmission Date: 20140127
  Serious: No
  Sender: FDA-Public Use
  Company Number: US-PFIZER INC-2011071614

PATIENT
  Age: 71 Year
  Sex: Female
  Weight: 104 kg

DRUGS (22)
  1. CELEBREX [Suspect]
     Indication: KNEE ARTHROPLASTY
     Dosage: 200MG IN THE MORNING AND 100MG AT NIGHT
  2. CELEBREX [Suspect]
     Indication: ARTHRITIS
  3. ALUMINIUM SULFATE/CALCIUM ACETATE [Concomitant]
     Dosage: 49-51% EX PACK
  4. ASPIRIN [Concomitant]
     Dosage: 325MG
     Route: 048
  5. TESSALON PERLE [Concomitant]
     Dosage: 100MG
     Route: 048
  6. WELLBUTRIN SR [Concomitant]
     Dosage: 150MG TB12
     Route: 048
  7. CALCIUM + D [Concomitant]
     Dosage: 600 -200 MG UNIT
     Route: 048
  8. CEFTIN [Concomitant]
     Dosage: 500MG
     Route: 048
  9. TUSSIONEX PENNKINETIC ER [Concomitant]
     Dosage: 8-10 MG/5ML LIQUID CONTROLLED RELEASE (LQCR)
     Route: 048
  10. CLOTRIMAZOLE - BETAMETHASONE [Concomitant]
     Dosage: 1-0.05%
  11. ECONAZOLE NITRATE [Concomitant]
     Dosage: 1%
  12. PREMARIN [Concomitant]
     Dosage: 0.625 MG, 1X/DAY
     Route: 048
  13. FLONASE [Concomitant]
     Dosage: 50MCG/ ACT NA SUSP
     Route: 045
  14. HYDROCODONE-ACETAMINOPHEN [Concomitant]
     Dosage: 7.5-750MG TABS
     Route: 048
  15. CLARITIN-D [Concomitant]
     Dosage: 5-120MG TB 12
     Route: 048
  16. TOPROL XL [Concomitant]
     Dosage: 50MG TB 24
     Route: 048
  17. NASONEX [Concomitant]
     Dosage: 50MCG/ACT NA SUSP
  18. MULTIVITAMINS [Concomitant]
     Dosage: UNK
     Route: 048
  19. BACTROBAN [Concomitant]
     Dosage: 2 %
  20. KLOR-CON [Concomitant]
     Dosage: 10MEQ TBCR
     Route: 048
  21. CODEINE/PROMETHAZINE [Concomitant]
     Dosage: 6.25-10MG/5ML SYRP
     Route: 048
  22. MAXZIDE-25 [Concomitant]
     Dosage: 37.5-25MG TABS
     Route: 048

REACTIONS (2)
  - Influenza [Not Recovered/Not Resolved]
  - Ear infection [Not Recovered/Not Resolved]
